FAERS Safety Report 7648285-2 (Version None)
Quarter: 2011Q3

REPORT INFORMATION
  Report Type: 
  Country: None (occurrence: None)
  Receive Date: 20110801
  Receipt Date: 20110721
  Transmission Date: 20111222
  Serious: Yes (Hospitalization, Other)
  Sender: FDA-Public Use
  Company Number: US-BAYER-201017143NA

PATIENT
  Age: 26 Year
  Sex: Female
  Weight: 51 kg

DRUGS (8)
  1. TYLENOL-500 [Concomitant]
  2. AMOXICILLIN [Concomitant]
     Dosage: 500 MG, UNK
     Dates: start: 20080710
  3. PRILOSEC [Concomitant]
     Dosage: 20 MG, QD
  4. YASMIN [Suspect]
     Route: 048
     Dates: start: 20040701
  5. FLUCONAZOLE [Concomitant]
     Dosage: 150 MG, UNK
     Dates: start: 20080723
  6. PERCOCET [Concomitant]
  7. YAZ [Suspect]
     Route: 048
     Dates: start: 20040701
  8. OMEPRAZOLE [Concomitant]
     Dosage: 20 MG, UNK
     Dates: start: 20080731

REACTIONS (5)
  - GALLBLADDER DISORDER [None]
  - VOMITING [None]
  - NAUSEA [None]
  - CHOLECYSTITIS CHRONIC [None]
  - MUSCULOSKELETAL CHEST PAIN [None]
